FAERS Safety Report 23382643 (Version 1)
Quarter: 2024Q1

REPORT INFORMATION
  Report Type: Spontaneous
  Country: NO (occurrence: GB)
  Receive Date: 20240109
  Receipt Date: 20240109
  Transmission Date: 20240410
  Serious: Yes (Hospitalization, Other)
  Sender: FDA-Public Use
  Company Number: NO-CELLTRION HEALTHCARE HUNGARY KFT-2023GB016175

PATIENT
  Age: 67 Year
  Sex: Female

DRUGS (36)
  1. RITUXIMAB [Suspect]
     Active Substance: RITUXIMAB
     Indication: B-cell lymphoma
     Dosage: 375 MG/M2
     Dates: start: 20220118
  2. RITUXIMAB [Suspect]
     Active Substance: RITUXIMAB
     Indication: Follicular lymphoma
     Dosage: 375 MG/M2
     Dates: start: 20220201
  3. RITUXIMAB [Suspect]
     Active Substance: RITUXIMAB
     Dosage: 375 MG/M2
     Dates: start: 20220207
  4. EPCORITAMAB [Suspect]
     Active Substance: EPCORITAMAB
     Indication: B-cell lymphoma
     Dosage: 0.16 MG
     Route: 042
     Dates: start: 20210118
  5. EPCORITAMAB [Suspect]
     Active Substance: EPCORITAMAB
     Indication: Follicular lymphoma
     Dosage: 0.8 MG, 1X/DAY
     Route: 042
     Dates: start: 20210125, end: 20230115
  6. EPCORITAMAB [Suspect]
     Active Substance: EPCORITAMAB
     Dosage: 0.16 MILLIGRAM
     Route: 042
     Dates: start: 20220207
  7. EPCORITAMAB [Suspect]
     Active Substance: EPCORITAMAB
     Dosage: 48 MILLIGRAM
     Dates: start: 20220301
  8. EPCORITAMAB [Suspect]
     Active Substance: EPCORITAMAB
     Dosage: 48 MILLIGRAM
     Route: 042
     Dates: start: 20220307
  9. LENALIDOMIDE [Suspect]
     Active Substance: LENALIDOMIDE
     Indication: Follicular lymphoma
     Dosage: 20 MG, 1X/DAY
     Route: 048
     Dates: start: 20220118, end: 20220202
  10. LENALIDOMIDE [Suspect]
     Active Substance: LENALIDOMIDE
     Indication: Follicular lymphoma
     Dosage: 40 MG, 1X/DAY (20 MG, BID)
     Route: 048
     Dates: start: 20220118, end: 20220202
  11. LENALIDOMIDE [Suspect]
     Active Substance: LENALIDOMIDE
     Indication: B-cell lymphoma
     Dosage: 0.16 MILLIGRAM
     Route: 042
     Dates: start: 20220207
  12. LEVOTHYROXINE SODIUM [Concomitant]
     Active Substance: LEVOTHYROXINE SODIUM
     Dosage: UNK
     Dates: start: 2007
  13. METFORMIN [Concomitant]
     Active Substance: METFORMIN HYDROCHLORIDE
     Dosage: ONCE A DAY
     Dates: start: 20220123, end: 20220125
  14. VALTREX [Concomitant]
     Active Substance: VALACYCLOVIR HYDROCHLORIDE
     Dosage: 20 MG, 1X/DAY
     Dates: start: 20220111, end: 20221219
  15. PREDNISOLONE [Concomitant]
     Active Substance: PREDNISOLONE
     Indication: Prophylaxis
     Dosage: 100 MG, 1X/DAY
     Route: 065
     Dates: start: 20220111, end: 20220121
  16. PREDNISOLONE [Concomitant]
     Active Substance: PREDNISOLONE
     Dosage: 100 MG, 1X/DAY
     Route: 065
     Dates: start: 20220125, end: 20220128
  17. PREDNISOLONE [Concomitant]
     Active Substance: PREDNISOLONE
     Dosage: 100 MG
     Dates: start: 20220201, end: 20220204
  18. ACETAMINOPHEN [Concomitant]
     Active Substance: ACETAMINOPHEN
     Dosage: UNK, ONCE A DAY
     Route: 065
     Dates: start: 20220118, end: 20220207
  19. JANUMET [Concomitant]
     Active Substance: METFORMIN HYDROCHLORIDE\SITAGLIPTIN PHOSPHATE
     Dosage: UNK, 1X/DAY
     Dates: start: 2012
  20. JANUMET [Concomitant]
     Active Substance: METFORMIN HYDROCHLORIDE\SITAGLIPTIN PHOSPHATE
     Dosage: UNK
     Dates: start: 20220123, end: 20220125
  21. SODIUM PICOSULFATE [Concomitant]
     Active Substance: SODIUM PICOSULFATE
     Dosage: UNK, 1X/DAY
     Dates: start: 20220125
  22. BACTRIM [Concomitant]
     Active Substance: SULFAMETHOXAZOLE\TRIMETHOPRIM
     Dosage: UNK, 1X/DAY
     Dates: start: 20220111, end: 20221219
  23. PANTOPRAZOLE SODIUM [Concomitant]
     Active Substance: PANTOPRAZOLE SODIUM
     Dosage: UNK, 1X/DAY
     Dates: start: 20220111
  24. SODIUM CHLORIDE [Concomitant]
     Active Substance: SODIUM CHLORIDE
     Dosage: UNK, 1X/DAY
     Dates: start: 20220118, end: 20220119
  25. LACTULOSE [Concomitant]
     Active Substance: LACTULOSE
     Dosage: UNK, 1X/DAY
     Dates: start: 20220125, end: 20220202
  26. ALLOPURINOL [Concomitant]
     Active Substance: ALLOPURINOL
     Dosage: UNK, 1X/DAY
     Dates: start: 20220118, end: 20220214
  27. CETIRIZINE [Concomitant]
     Active Substance: CETIRIZINE HYDROCHLORIDE
     Dosage: 10 MILLIGRAM
     Route: 048
     Dates: start: 20220118, end: 20220207
  28. CETIRIZINE [Concomitant]
     Active Substance: CETIRIZINE HYDROCHLORIDE
     Dosage: 15 MG, 1X/DAY
     Route: 065
     Dates: start: 20220118, end: 20220201
  29. MAGNESIUM [Concomitant]
     Active Substance: MAGNESIUM
     Dosage: UNK, 1X/DAY
     Dates: start: 20220125, end: 20220926
  30. METFORMIN\SITAGLIPTIN [Concomitant]
     Active Substance: METFORMIN\SITAGLIPTIN
     Dosage: UNK
     Dates: start: 20220123, end: 20220125
  31. FRAGMIN [Concomitant]
     Active Substance: DALTEPARIN SODIUM
     Dosage: UNK, 1X/DAY
     Dates: start: 20211215
  32. FUROSEMIDE [Concomitant]
     Active Substance: FUROSEMIDE
     Dosage: UNK
     Dates: start: 20220125, end: 20220126
  33. NOVORAPID [Concomitant]
     Active Substance: INSULIN ASPART
     Dosage: UNK
     Dates: start: 20220202
  34. EXFORGE [Concomitant]
     Active Substance: AMLODIPINE BESYLATE\VALSARTAN
     Dosage: UNK, 1X/DAY
     Dates: start: 202001
  35. LIPITOR [Concomitant]
     Active Substance: ATORVASTATIN CALCIUM
     Dosage: UNK, 1X/DAY
     Dates: start: 2018
  36. ONDANSETRON [Concomitant]
     Active Substance: ONDANSETRON
     Dosage: UNK
     Dates: start: 20220902, end: 20220902

REACTIONS (2)
  - Pneumocystis jirovecii pneumonia [Unknown]
  - Cytokine release syndrome [Recovered/Resolved]

NARRATIVE: CASE EVENT DATE: 20220123
